FAERS Safety Report 8122901-3 (Version None)
Quarter: 2012Q1

REPORT INFORMATION
  Report Type: 
  Country: None (occurrence: None)
  Receive Date: 20120208
  Receipt Date: 20120201
  Transmission Date: 20120608
  Serious: Yes (Other)
  Sender: FDA-Public Use
  Company Number: US-PFIZER INC-2012029255

PATIENT
  Sex: Male

DRUGS (8)
  1. NOVOLIN R [Concomitant]
     Dosage: UNK
  2. SIMVASTATIN [Concomitant]
     Dosage: UNK
  3. CLOPIDOGREL BISULFATE [Suspect]
     Dosage: UNK
  4. XANAX [Interacting]
     Dosage: UNK
     Dates: start: 20111215
  5. ALLEGRA D 24 HOUR [Interacting]
     Indication: HYPERSENSITIVITY
     Dosage: 180MG+240MG ONCE A DAY
     Route: 048
     Dates: start: 20111212
  6. CLARITIN-D [Interacting]
     Dosage: UNK
  7. INSULIN GLARGINE [Suspect]
     Dosage: UNK
  8. TAMSULOSIN HCL [Suspect]
     Dosage: UNK

REACTIONS (4)
  - LOSS OF CONSCIOUSNESS [None]
  - MALAISE [None]
  - DRUG INTERACTION [None]
  - INJECTION SITE PAIN [None]
